FAERS Safety Report 13039910 (Version 2)
Quarter: 2016Q4

REPORT INFORMATION
  Report Type: Report from Study
  Country: FR (occurrence: FR)
  Receive Date: 20161219
  Receipt Date: 20161222
  Transmission Date: 20170207
  Serious: Yes (Hospitalization)
  Sender: FDA-Public Use
  Company Number: FR-JNJFOC-20161212461

PATIENT
  Age: 13 Year
  Sex: Male
  Weight: 40 kg

DRUGS (5)
  1. 5-AMINOSALICYLIC ACID [Concomitant]
     Active Substance: MESALAMINE
     Route: 054
  2. REMICADE [Suspect]
     Active Substance: INFLIXIMAB
     Indication: CROHN^S DISEASE
     Route: 042
     Dates: start: 20090117
  3. BUDESONIDE. [Concomitant]
     Active Substance: BUDESONIDE
     Route: 065
  4. MERCAPTOPURINE. [Suspect]
     Active Substance: MERCAPTOPURINE
     Indication: PRODUCT USED FOR UNKNOWN INDICATION
     Route: 065
  5. HUMIRA [Suspect]
     Active Substance: ADALIMUMAB
     Indication: CROHN^S DISEASE
     Route: 065
     Dates: start: 20091216

REACTIONS (1)
  - Rotavirus infection [Recovered/Resolved]

NARRATIVE: CASE EVENT DATE: 20150505
